FAERS Safety Report 16876965 (Version 1)
Quarter: 2019Q4

REPORT INFORMATION
  Report Type: Spontaneous
  Country: FR (occurrence: FR)
  Receive Date: 20191002
  Receipt Date: 20191002
  Transmission Date: 20200122
  Serious: Yes (Hospitalization, Other)
  Sender: FDA-Public Use
  Company Number: FR-ACCORD-124388

PATIENT
  Age: 15 Year
  Sex: Male
  Weight: 57.3 kg

DRUGS (5)
  1. IFOSFAMIDE EG [Suspect]
     Active Substance: IFOSFAMIDE
     Indication: TESTICULAR GERM CELL TUMOUR
     Dosage: STRENGTH: 40 MG/ML
     Route: 041
     Dates: start: 20160930, end: 20161209
  2. ETOPOSIDE MYLAN [Suspect]
     Active Substance: ETOPOSIDE
     Indication: TESTICULAR GERM CELL TUMOUR
     Dosage: STRENGTH: 20 MG / ML
     Route: 041
     Dates: start: 20160930, end: 20161212
  3. CISPLATIN ACCORD [Suspect]
     Active Substance: CISPLATIN
     Indication: TESTICULAR GERM CELL TUMOUR
     Dosage: STRENGTH: 1 MG
     Route: 041
     Dates: start: 20160930, end: 20161212
  4. ETOPOSIDE MYLAN [Suspect]
     Active Substance: ETOPOSIDE
     Indication: TESTICULAR GERM CELL TUMOUR
     Dosage: STRENGTH: 20 MG / ML; FROM D1 TO D5
     Route: 041
     Dates: start: 20160903, end: 20161118
  5. CISPLATIN ACCORD [Suspect]
     Active Substance: CISPLATIN
     Indication: TESTICULAR GERM CELL TUMOUR
     Dosage: STRENGTH: 1 MG; FROM D1 TO D5
     Route: 041
     Dates: start: 20160930, end: 20161118

REACTIONS (2)
  - Epistaxis [Recovered/Resolved]
  - Aplasia [Recovered/Resolved]

NARRATIVE: CASE EVENT DATE: 20161201
